FAERS Safety Report 13643258 (Version 3)
Quarter: 2017Q3

REPORT INFORMATION
  Report Type: Report from Study
  Country: DE (occurrence: DE)
  Receive Date: 20170612
  Receipt Date: 20170728
  Transmission Date: 20171127
  Serious: Yes (Hospitalization)
  Sender: FDA-Public Use
  Company Number: PHHO2016DE009787

PATIENT
  Age: 55 Year
  Sex: Female
  Weight: 61.5 kg

DRUGS (7)
  1. AMPHO MORONAL [Concomitant]
     Active Substance: AMPHOTERICIN B
     Indication: INFECTION
     Dosage: 50 ML, TABL
     Route: 065
     Dates: start: 20160211
  2. AIN457 [Suspect]
     Active Substance: SECUKINUMAB
     Indication: PSORIASIS
     Route: 058
     Dates: start: 20151022, end: 20160520
  3. FUMARIC ACID [Concomitant]
     Active Substance: FUMARIC ACID
     Indication: PRODUCT USED FOR UNKNOWN INDICATION
     Dosage: UNK
     Route: 065
     Dates: start: 2014
  4. CHAMPIX [Concomitant]
     Active Substance: VARENICLINE TARTRATE
     Indication: SMOKING CESSATION THERAPY
     Dosage: 10 MG, QD
     Route: 065
  5. CANDESARTAN. [Concomitant]
     Active Substance: CANDESARTAN
     Indication: INFECTION
     Route: 065
     Dates: start: 20160308
  6. TILIDIN [Concomitant]
     Active Substance: NALOXONE HYDROCHLORIDE\TILIDINE HYDROCHLORIDE
     Indication: EAR INFECTION
     Dosage: 400 MG, BID
     Route: 065
     Dates: start: 20160520
  7. ZOLPIDEM [Concomitant]
     Active Substance: ZOLPIDEM\ZOLPIDEM TARTRATE
     Indication: SLEEP DISORDER
     Dosage: UNK
     Route: 065
     Dates: start: 201501

REACTIONS (5)
  - Labyrinthitis [Unknown]
  - Leukoplakia [Unknown]
  - Tympanic membrane disorder [Unknown]
  - Mastoiditis [Recovered/Resolved]
  - Dermal cyst [Unknown]

NARRATIVE: CASE EVENT DATE: 20160608
